FAERS Safety Report 5961620-6 (Version None)
Quarter: 2008Q4

REPORT INFORMATION
  Report Type: 
  Country: None (occurrence: None)
  Receive Date: 20081121
  Receipt Date: 20081110
  Transmission Date: 20090506
  Serious: Yes (Other)
  Sender: FDA-Public Use
  Company Number: KP-WATSON-2008-06642

PATIENT
  Age: 66 Year
  Sex: Female

DRUGS (1)
  1. CEFAZOLIN SODIUM                   09 [Suspect]
     Indication: LUMBAR SPINAL STENOSIS
     Dosage: 500 MG, SINGLE CEREBROSPINAL
     Route: 050

REACTIONS (3)
  - DYSARTHRIA [None]
  - DYSPHAGIA [None]
  - STATUS EPILEPTICUS [None]
